FAERS Safety Report 6961679-3 (Version None)
Quarter: 2010Q3

REPORT INFORMATION
  Report Type: 
  Country: None (occurrence: None)
  Receive Date: 20100901
  Receipt Date: 20100826
  Transmission Date: 20110219
  Serious: Yes (Hospitalization)
  Sender: FDA-Public Use
  Company Number: DE-AMGEN-QUU435186

PATIENT
  Age: 71 Year
  Sex: Female

DRUGS (8)
  1. ENBREL [Suspect]
     Indication: RHEUMATOID ARTHRITIS
     Route: 058
     Dates: start: 20091201, end: 20100202
  2. PREDNISOLONE [Concomitant]
     Dosage: 10MG PER DAY
  3. FALITHROM [Concomitant]
     Dosage: UNKNOWN
     Dates: start: 20080101
  4. METOPROLOL TARTRATE [Concomitant]
  5. CALCIUM [Concomitant]
  6. COLECALCIFEROL [Concomitant]
  7. SULFASALAZINE [Concomitant]
     Indication: RHEUMATOID ARTHRITIS
     Dosage: 2000MG PER DAY
     Dates: start: 20091101
  8. LEVOTHYROXINE [Concomitant]

REACTIONS (2)
  - PULMONARY MASS [None]
  - RHEUMATOID NODULE [None]
